FAERS Safety Report 7897080-8 (Version None)
Quarter: 2011Q4

REPORT INFORMATION
  Report Type: 
  Country: None (occurrence: None)
  Receive Date: 20111107
  Receipt Date: 20111026
  Transmission Date: 20120403
  Serious: Yes (Hospitalization)
  Sender: FDA-Public Use
  Company Number: CA-JNJFOC-20111012751

PATIENT
  Age: 35 Year
  Sex: Female
  Weight: 102.06 kg

DRUGS (3)
  1. ^ASTHMA MEDICINE^ [Concomitant]
     Indication: ASTHMA
     Route: 065
  2. EXTRA STRENGHT TYLENOL SINUS NIGHTTIME [Suspect]
     Indication: SINUS DISORDER
     Route: 048
     Dates: start: 20111012, end: 20111012
  3. ANTIHYPERTENSIVES [Concomitant]
     Indication: HYPERTENSION
     Route: 065

REACTIONS (7)
  - DIZZINESS [None]
  - PHARYNGEAL OEDEMA [None]
  - FALL [None]
  - HEAD INJURY [None]
  - MYOCARDIAL INFARCTION [None]
  - EPISTAXIS [None]
  - TABLET PHYSICAL ISSUE [None]
